FAERS Safety Report 7572989-3 (Version None)
Quarter: 2011Q2

REPORT INFORMATION
  Report Type: 
  Country: None (occurrence: None)
  Receive Date: 20110627
  Receipt Date: 20110617
  Transmission Date: 20111010
  Serious: Yes (Other)
  Sender: FDA-Public Use
  Company Number: US-JNJFOC-20110608695

PATIENT
  Sex: Female
  Weight: 117.94 kg

DRUGS (5)
  1. DURAGESIC-100 [Suspect]
     Route: 062
  2. DURAGESIC-100 [Suspect]
     Route: 062
  3. HYDROCHLOROTHIAZIDE [Concomitant]
     Indication: HYPERTENSION
     Dosage: 20/25 MG DAILY
     Route: 048
  4. DURAGESIC-100 [Suspect]
     Indication: SACROILIITIS
     Route: 062
     Dates: start: 20080601
  5. DURAGESIC-100 [Suspect]
     Indication: FACET JOINT SYNDROME
     Route: 062
     Dates: start: 20080601

REACTIONS (4)
  - DRUG INEFFECTIVE [None]
  - FORMICATION [None]
  - PRODUCT ADHESION ISSUE [None]
  - DRUG DOSE OMISSION [None]
